FAERS Safety Report 10519046 (Version 2)
Quarter: 2014Q4

REPORT INFORMATION
  Report Type: Spontaneous
  Country: DK (occurrence: JP)
  Receive Date: 20141015
  Receipt Date: 20141015
  Transmission Date: 20150528
  Serious: Yes (Hospitalization)
  Sender: FDA-Public Use
  Company Number: JP-FRI-1000071464

PATIENT
  Age: 86 Year
  Sex: Male

DRUGS (1)
  1. LEXAPRO [Suspect]
     Active Substance: ESCITALOPRAM OXALATE
     Indication: DEPRESSION
     Dosage: 10MG
     Route: 048
     Dates: start: 20140704, end: 20140726

REACTIONS (3)
  - Tremor [Unknown]
  - Musculoskeletal stiffness [Unknown]
  - Fear [Unknown]

NARRATIVE: CASE EVENT DATE: 20140712
